FAERS Safety Report 5273565-8 (Version None)
Quarter: 2007Q1

REPORT INFORMATION
  Report Type: 
  Country: None (occurrence: None)
  Receive Date: 20070321
  Receipt Date: 20070321
  Transmission Date: 20070707
  Serious: Yes (Hospitalization)
  Sender: FDA-Public Use
  Company Number: None

PATIENT
  Age: 68 Year
  Sex: Male
  Weight: 103.1 kg

DRUGS (1)
  1. METRONIDAZOLE [Suspect]
     Indication: DIARRHOEA INFECTIOUS
     Dosage: 500MG TID PO
     Route: 048
     Dates: start: 20070308, end: 20070319

REACTIONS (1)
  - PANCREATITIS ACUTE [None]
